FAERS Safety Report 8142562-7 (Version None)
Quarter: 2012Q1

REPORT INFORMATION
  Report Type: 
  Country: None (occurrence: None)
  Receive Date: 20120216
  Receipt Date: 20120209
  Transmission Date: 20120608
  Serious: Yes (Other)
  Sender: FDA-Public Use
  Company Number: US-BAYER-2012-015285

PATIENT
  Age: 53 Year
  Sex: Female

DRUGS (2)
  1. EXCEDRIN (MIGRAINE) [Suspect]
     Indication: RETINAL MIGRAINE
     Dosage: 0.5-2 TABLETS IN 24 HOURS
     Route: 048
     Dates: start: 20090101, end: 20120101
  2. ASPIRIN [Suspect]
     Indication: ISCHAEMIC HEART DISEASE PROPHYLAXIS
     Dosage: UNK
     Route: 048

REACTIONS (5)
  - PYREXIA [None]
  - URINARY TRACT INFECTION [None]
  - BLADDER PAIN [None]
  - HAEMORRHAGE URINARY TRACT [None]
  - CHILLS [None]
